FAERS Safety Report 7255063-5 (Version None)
Quarter: 2011Q1

REPORT INFORMATION
  Report Type: 
  Country: None (occurrence: None)
  Receive Date: 20110129
  Receipt Date: 20100303
  Transmission Date: 20110831
  Serious: No
  Sender: FDA-Public Use
  Company Number: US-ABBOTT-10P-163-0630640-00

PATIENT
  Sex: Female
  Weight: 73.094 kg

DRUGS (6)
  1. BENTYL [Concomitant]
     Indication: PRODUCT USED FOR UNKNOWN INDICATION
     Route: 048
     Dates: start: 20070322
  2. LIBRAX [Concomitant]
     Indication: PRODUCT USED FOR UNKNOWN INDICATION
     Dosage: CONVENTIONAL 2.5-5MG
     Route: 048
     Dates: start: 20070322
  3. TERBUTALINE SULFATE [Concomitant]
     Indication: PRODUCT USED FOR UNKNOWN INDICATION
     Dosage: 1 EVERY 6 HOURS AS NEEDED
     Route: 048
     Dates: start: 20090903
  4. PREVACID [Concomitant]
     Indication: PRODUCT USED FOR UNKNOWN INDICATION
     Dosage: PACK
     Route: 048
     Dates: start: 20070322
  5. HUMIRA [Suspect]
     Indication: CROHN'S DISEASE
     Route: 058
     Dates: start: 20090324
  6. GESTICARE [Concomitant]
     Indication: PRODUCT USED FOR UNKNOWN INDICATION
     Dosage: 28-1MG
     Route: 048
     Dates: start: 20090324

REACTIONS (3)
  - NAUSEA [None]
  - ASTHENIA [None]
  - FATIGUE [None]
